FAERS Safety Report 4855753-5 (Version None)
Quarter: 2005Q4

REPORT INFORMATION
  Report Type: 
  Country: None (occurrence: None)
  Receive Date: 20051215
  Receipt Date: 20051215
  Transmission Date: 20060501
  Serious: Yes (Other)
  Sender: FDA-Public Use
  Company Number: None

PATIENT
  Age: 36 Year
  Sex: Female
  Weight: 93.441 kg

DRUGS (4)
  1. HERCEPTIN [Suspect]
     Indication: BREAST CANCER METASTATIC
     Dosage: 2 MG/KG WEEKLY IV
     Route: 042
     Dates: start: 20050906, end: 20051024
  2. AVASTIN [Suspect]
     Indication: BREAST CANCER METASTATIC
     Dosage: 5 MG/KG EVERY OTHER WEEK IV
     Route: 042
     Dates: start: 20050906
  3. TAXOL [Suspect]
     Indication: BREAST CANCER METASTATIC
     Dosage: 80 MG/M2 WEEKLY IV
     Route: 042
     Dates: start: 20050906
  4. ZOMETA [Suspect]
     Indication: BREAST CANCER METASTATIC
     Dosage: 4 MG IV MONTHLY
     Route: 042
     Dates: start: 20050503

REACTIONS (1)
  - EJECTION FRACTION DECREASED [None]
